FAERS Safety Report 4362339-8 (Version None)
Quarter: 2004Q2

REPORT INFORMATION
  Report Type: 
  Country: None (occurrence: None)
  Receive Date: 20040521
  Receipt Date: 20040511
  Transmission Date: 20050107
  Serious: Yes (Hospitalization)
  Sender: FDA-Public Use
  Company Number: JACFRA2000000285

PATIENT
  Sex: Male
  Weight: 79 kg

DRUGS (11)
  1. TOPIRAMATE [Suspect]
     Route: 049
  2. TOPIRAMATE [Suspect]
     Indication: EPILEPSY
     Route: 049
  3. DEPAKENE [Interacting]
  4. DEPAKENE [Interacting]
  5. DEPAKENE [Interacting]
  6. DEPAKENE [Interacting]
  7. DEPAKENE [Interacting]
     Indication: EPILEPSY
  8. TEGRETOL [Interacting]
     Route: 049
  9. TEGRETOL [Interacting]
     Indication: EPILEPSY
     Route: 049
  10. URBANYL [Concomitant]
     Indication: EPILEPSY
     Route: 049
     Dates: start: 19971101
  11. LAMICTAL [Concomitant]
     Indication: EPILEPSY
     Route: 049
     Dates: start: 20000201

REACTIONS (8)
  - ASTERIXIS [None]
  - CONFUSIONAL STATE [None]
  - CONVULSION [None]
  - DRUG INTERACTION [None]
  - ELECTROENCEPHALOGRAM ABNORMAL [None]
  - ENCEPHALOPATHY [None]
  - HYPERAMMONAEMIA [None]
  - PSYCHOMOTOR RETARDATION [None]
